APPROVED DRUG PRODUCT: IC-GREEN
Active Ingredient: INDOCYANINE GREEN
Strength: 25MG/VIAL
Dosage Form/Route: INJECTABLE;INJECTION
Application: N011525 | Product #001 | TE Code: AP
Applicant: RENEW PHARMACEUTICALS LTD
Approved: Approved Prior to Jan 1, 1982 | RLD: Yes | RS: No | Type: RX